FAERS Safety Report 4804519-0 (Version None)
Quarter: 2005Q4

REPORT INFORMATION
  Report Type: 
  Country: None (occurrence: None)
  Receive Date: 20051018
  Receipt Date: 20051018
  Transmission Date: 20060501
  Serious: Yes (Hospitalization)
  Sender: FDA-Public Use
  Company Number: None

PATIENT
  Sex: Male
  Weight: 70 kg

DRUGS (9)
  1. TEMOZOLOMIDE 200MG/M2 ON DAY; 25MG/M2 DAYS 2-5 FOR 28 DAY CYCLE [Suspect]
     Indication: GLIOBLASTOMA
     Dosage: PO 360MG (DAY1) 45MG (DAY2-5)
     Route: 048
     Dates: start: 20050928, end: 20051002
  2. 06BG 120MG M2 BOLUS 1 HR INFUSION X 3 OVER 5 DAYS [Suspect]
     Indication: GLIOBLASTOMA
     Dosage: IV 215MG BOLUS
     Route: 040
     Dates: start: 20050928, end: 20051002
  3. 06BG 30MG/M2 CONTINUOUS FOR 5 DAYS [Suspect]
     Indication: GLIOBLASTOMA
     Dosage: 54MG CONTINUOUS
     Dates: start: 20050928, end: 20051002
  4. TOPAMAX [Concomitant]
  5. DECADRON [Concomitant]
  6. PREVACID [Concomitant]
  7. LIPITOR [Concomitant]
  8. METOPROLOL [Concomitant]
  9. ATIVAN [Concomitant]

REACTIONS (6)
  - CHILLS [None]
  - NEUTROPHIL COUNT DECREASED [None]
  - PYREXIA [None]
  - TACHYCARDIA [None]
  - THROMBOCYTOPENIA [None]
  - WHITE BLOOD CELL COUNT DECREASED [None]
